FAERS Safety Report 6437844-0 (Version None)
Quarter: 2009Q4

REPORT INFORMATION
  Report Type: 
  Country: None (occurrence: None)
  Receive Date: 20091112
  Receipt Date: 20091102
  Transmission Date: 20100525
  Serious: Yes (Other)
  Sender: FDA-Public Use
  Company Number: US-AMGEN-QUU370394

PATIENT
  Sex: Female

DRUGS (10)
  1. ENBREL [Suspect]
     Indication: PSORIASIS
     Route: 058
     Dates: start: 20090916
  2. CALCITRIOL [Concomitant]
     Dates: start: 20090101
  3. COAL TAR [Concomitant]
     Dates: start: 20090701
  4. UNSPECIFIED MEDICATION [Concomitant]
     Dates: start: 20090701
  5. TOPAMAX [Concomitant]
  6. LITHIUM [Concomitant]
  7. ZOLOFT [Concomitant]
  8. LEVOXYL [Concomitant]
  9. LAMICTAL [Concomitant]
  10. UNSPECIFIED TOPICAL PRODUCT [Concomitant]
     Dates: start: 20090101

REACTIONS (2)
  - ABNORMAL DREAMS [None]
  - AMNESIA [None]
